FAERS Safety Report 4957056-7 (Version None)
Quarter: 2006Q1

REPORT INFORMATION
  Report Type: 
  Country: None (occurrence: None)
  Receive Date: 20060329
  Receipt Date: 20050721
  Transmission Date: 20060701
  Serious: Yes (Hospitalization)
  Sender: FDA-Public Use
  Company Number: FR-ABBOTT-05P-056-0306343-00

PATIENT
  Sex: Female
  Weight: 56 kg

DRUGS (8)
  1. HUMIRA [Suspect]
     Indication: RHEUMATOID ARTHRITIS
     Route: 058
     Dates: start: 20040224, end: 20050105
  2. HUMIRA [Suspect]
     Route: 058
     Dates: start: 20050426
  3. COMMERCIAL HUMIRA [Concomitant]
     Indication: RHEUMATOID ARTHRITIS
     Route: 058
     Dates: start: 20031201
  4. VENLAFAXINE HCL [Concomitant]
     Indication: DEPRESSION
     Dates: start: 20010101
  5. PRAZEPAM [Concomitant]
     Indication: ANXIETY
     Dates: start: 20010101
  6. ZOPICLONE [Concomitant]
     Indication: SLEEP DISORDER
     Dates: start: 20010101
  7. HYDROXYZINE HYDROCHLORIDE [Concomitant]
     Indication: UNEVALUABLE EVENT
     Dates: start: 20050101
  8. NULYTELY [Concomitant]
     Indication: CONSTIPATION
     Dates: start: 20050101

REACTIONS (3)
  - LYMPHADENOPATHY [None]
  - RASH ERYTHEMATOUS [None]
  - SKIN EXFOLIATION [None]
